FAERS Safety Report 4709887-6 (Version None)
Quarter: 2005Q3

REPORT INFORMATION
  Report Type: 
  Country: None (occurrence: None)
  Receive Date: 20050708
  Receipt Date: 20050627
  Transmission Date: 20060218
  Serious: Yes (Hospitalization)
  Sender: FDA-Public Use
  Company Number: FR-BRISTOL-MYERS SQUIBB COMPANY-13017330

PATIENT
  Age: 3 Month
  Sex: Female

DRUGS (4)
  1. MUCOMYST [Suspect]
     Indication: RHINITIS
     Dosage: 100 MG/5 ML POWDER FOR ORAL SUSPENSION
     Route: 048
     Dates: start: 20050519
  2. MUCOMYST [Suspect]
     Indication: COUGH
     Dosage: 100 MG/5 ML POWDER FOR ORAL SUSPENSION
     Route: 048
     Dates: start: 20050519
  3. OCTOFENE [Suspect]
     Indication: RHINITIS
     Route: 054
     Dates: start: 20050519
  4. OCTOFENE [Suspect]
     Indication: COUGH
     Route: 054
     Dates: start: 20050519

REACTIONS (2)
  - CONDITION AGGRAVATED [None]
  - PNEUMONIA [None]
